FAERS Safety Report 18796040 (Version 1)
Quarter: 2021Q1

REPORT INFORMATION
  Report Type: Report from Study
  Country: US (occurrence: US)
  Receive Date: 20210127
  Receipt Date: 20210127
  Transmission Date: 20210419
  Serious: Yes (Death, Other)
  Sender: FDA-Public Use
  Company Number: US-JNJFOC-20210115166

PATIENT
  Age: 92 Year
  Sex: Female
  Weight: 51.8 kg

DRUGS (4)
  1. COUMADIN [Concomitant]
     Active Substance: WARFARIN SODIUM
  2. ELIQUIS [Concomitant]
     Active Substance: APIXABAN
  3. ADEMPAS [Concomitant]
     Active Substance: RIOCIGUAT
  4. MACITENTAN [Suspect]
     Active Substance: MACITENTAN
     Indication: PULMONARY ARTERIAL HYPERTENSION
     Route: 048

REACTIONS (2)
  - Death [Fatal]
  - Cardiac failure congestive [Unknown]
